FAERS Safety Report 7296657-0 (Version None)
Quarter: 2011Q1

REPORT INFORMATION
  Report Type: 
  Country: None (occurrence: None)
  Receive Date: 20110216
  Receipt Date: 20110207
  Transmission Date: 20110831
  Serious: Yes (Other)
  Sender: FDA-Public Use
  Company Number: DE-GENZYME-CERZ-1001857

PATIENT
  Sex: Female

DRUGS (1)
  1. CEREZYME [Suspect]
     Indication: GAUCHER'S DISEASE
     Dosage: UNK UNK, UNK
     Route: 042

REACTIONS (5)
  - MENINGIOMA [None]
  - PAIN IN EXTREMITY [None]
  - FATIGUE [None]
  - SLUGGISHNESS [None]
  - ASTHENIA [None]
